FAERS Safety Report 25106720 (Version 1)
Quarter: 2025Q1

REPORT INFORMATION
  Report Type: Spontaneous
  Country: CO (occurrence: CO)
  Receive Date: 20250321
  Receipt Date: 20250321
  Transmission Date: 20250408
  Serious: Yes (Other)
  Sender: BIOMARIN
  Company Number: CO-BIOMARINAP-CO-2024-160687

PATIENT

DRUGS (2)
  1. NAGLAZYME [Suspect]
     Active Substance: GALSULFASE
     Indication: Mucopolysaccharidosis VI
     Dosage: 40 MILLIGRAM, QW
     Route: 042
     Dates: start: 20100728
  2. MOMETASONE [Concomitant]
     Active Substance: MOMETASONE
     Indication: Product used for unknown indication
     Dosage: 1 PUFF, QD

REACTIONS (3)
  - Deafness neurosensory [Unknown]
  - Tympanic membrane perforation [Not Recovered/Not Resolved]
  - Mastoiditis [Unknown]
